FAERS Safety Report 12667005 (Version 1)
Quarter: 2016Q3

REPORT INFORMATION
  Report Type: Spontaneous
  Country: US (occurrence: None)
  Receive Date: 20160818
  Receipt Date: 20160818
  Transmission Date: 20161109
  Serious: Yes (Hospitalization)
  Sender: FDA-Public Use
  Company Number: None

PATIENT
  Age: 67 Year
  Sex: Male
  Weight: 71.67 kg

DRUGS (2)
  1. BABY ASPIRIN [Concomitant]
     Active Substance: ASPIRIN
  2. PLAVIX [Suspect]
     Active Substance: CLOPIDOGREL BISULFATE
     Indication: ISCHAEMIC HEART DISEASE PROPHYLAXIS
     Route: 048

REACTIONS (11)
  - Thrombosis [None]
  - Neuroendocrine tumour [None]
  - Platelet count decreased [None]
  - Dysplasia [None]
  - Myocardial infarction [None]
  - Rash [None]
  - Bone marrow toxicity [None]
  - Red blood cell count decreased [None]
  - Gait disturbance [None]
  - Anaemia [None]
  - Cellulitis orbital [None]

NARRATIVE: CASE EVENT DATE: 20071215
